FAERS Safety Report 14432208 (Version 2)
Quarter: 2018Q1

REPORT INFORMATION
  Report Type: Spontaneous
  Country: BE (occurrence: BE)
  Receive Date: 20180124
  Receipt Date: 20180222
  Transmission Date: 20180509
  Serious: Yes (Hospitalization)
  Sender: FDA-Public Use
  Company Number: BE-IPSEN BIOPHARMACEUTICALS, INC.-2018-01090

PATIENT
  Age: 71 Year
  Sex: Female
  Weight: 58 kg

DRUGS (16)
  1. LEUCOVORIN. [Suspect]
     Active Substance: LEUCOVORIN
     Indication: COLORECTAL CANCER METASTATIC
     Dosage: NOT REPORTED
     Route: 042
  2. PROLIA [Concomitant]
     Active Substance: DENOSUMAB
  3. DAFALGAN FORTE [Concomitant]
     Dates: start: 20161109
  4. AACIDEXAM [Concomitant]
     Active Substance: DEXAMETHASONE
     Dates: start: 20171004
  5. IMODIUM [Concomitant]
     Active Substance: LOPERAMIDE HYDROCHLORIDE
     Dates: start: 20171018
  6. BETMIGA [Concomitant]
     Active Substance: MIRABEGRON
     Dates: start: 20171018
  7. ALOXI [Concomitant]
     Active Substance: PALONOSETRON HYDROCHLORIDE
     Dates: start: 20171004
  8. ATROPINE. [Concomitant]
     Active Substance: ATROPINE
     Dates: start: 20171004
  9. PANTOPRAZOLE [Concomitant]
     Active Substance: PANTOPRAZOLE
     Dates: start: 20170927
  10. MOVICOL [Concomitant]
     Active Substance: POLYETHYLENE GLYCOL 3350\POTASSIUM CHLORIDE\SODIUM BICARBONATE\SODIUM CHLORIDE
     Dates: start: 20161109
  11. IRINOTECAN LIPOSOME [Suspect]
     Active Substance: IRINOTECAN
     Indication: OFF LABEL USE
  12. FEROGRAD-500 [Concomitant]
     Dates: start: 20161109
  13. CACIT D3 [Concomitant]
     Active Substance: CALCIUM\CHOLECALCIFEROL
  14. IRINOTECAN LIPOSOME [Suspect]
     Active Substance: IRINOTECAN
     Indication: COLORECTAL CANCER METASTATIC
     Dosage: NOT REPORTED
     Route: 042
  15. AFLIBERCEPT [Suspect]
     Active Substance: AFLIBERCEPT
     Indication: COLORECTAL CANCER METASTATIC
     Dosage: NOT REPORTED
     Route: 042
     Dates: start: 20171004, end: 20171004
  16. 5-FU [Suspect]
     Active Substance: FLUOROURACIL
     Indication: COLORECTAL CANCER METASTATIC
     Dosage: NOT REPORTED
     Route: 042

REACTIONS (4)
  - Off label use [Unknown]
  - Hypocalcaemia [Unknown]
  - General physical health deterioration [Unknown]
  - Decreased appetite [Unknown]

NARRATIVE: CASE EVENT DATE: 20171108
